FAERS Safety Report 10287023 (Version 1)
Quarter: 2014Q3

REPORT INFORMATION
  Report Type: Report from Study
  Country: US (occurrence: US)
  Receive Date: 20140709
  Receipt Date: 20140709
  Transmission Date: 20150326
  Serious: Yes (Other)
  Sender: FDA-Public Use
  Company Number: US-SA-2014SA087647

PATIENT
  Age: 52 Year
  Sex: Female

DRUGS (1)
  1. LANTUS [Suspect]
     Active Substance: INSULIN GLARGINE
     Indication: PRODUCT USED FOR UNKNOWN INDICATION
     Route: 065

REACTIONS (9)
  - Eye disorder [Unknown]
  - Myocardial infarction [Unknown]
  - Asthenia [Unknown]
  - Decreased appetite [Unknown]
  - Blood glucose abnormal [Unknown]
  - Transient ischaemic attack [Unknown]
  - Memory impairment [Unknown]
  - Ulcer [Unknown]
  - Cardiovascular insufficiency [Unknown]

NARRATIVE: CASE EVENT DATE: 2013
